FAERS Safety Report 7112266-8 (Version None)
Quarter: 2010Q4

REPORT INFORMATION
  Report Type: 
  Country: None (occurrence: None)
  Receive Date: 20101119
  Receipt Date: 20100511
  Transmission Date: 20110411
  Serious: No
  Sender: FDA-Public Use
  Company Number: A0859145A

PATIENT
  Age: 37 Year
  Sex: Male

DRUGS (2)
  1. AVODART [Suspect]
     Indication: HAIR DISORDER
     Dosage: .5MG PER DAY
     Route: 048
     Dates: start: 20090301
  2. NO CONCURRENT MEDICATION [Concomitant]

REACTIONS (3)
  - DRUG INEFFECTIVE [None]
  - HAIR GROWTH ABNORMAL [None]
  - THERAPEUTIC RESPONSE UNEXPECTED [None]
